FAERS Safety Report 17238507 (Version 1)
Quarter: 2020Q1

REPORT INFORMATION
  Report Type: Spontaneous
  Country: US (occurrence: US)
  Receive Date: 20200106
  Receipt Date: 20200106
  Transmission Date: 20200409
  Serious: No
  Sender: FDA-Public Use
  Company Number: US-BIOMARINAP-US-2019-127479

PATIENT
  Sex: Male
  Weight: 72 kg

DRUGS (1)
  1. VIMIZIM [Suspect]
     Active Substance: ELOSULFASE ALFA
     Indication: MUCOPOLYSACCHARIDOSIS IV
     Dosage: UNK, QW
     Route: 042
     Dates: start: 20191022

REACTIONS (3)
  - Erythema [Unknown]
  - Pruritus [Unknown]
  - Infusion related reaction [Unknown]

NARRATIVE: CASE EVENT DATE: 201912
